FAERS Safety Report 8909601 (Version 1)
Quarter: 2012Q4

REPORT INFORMATION
  Report Type: 
  Country: FR (occurrence: FR)
  Receive Date: 20121115
  Receipt Date: 20121115
  Transmission Date: 20130627
  Serious: Yes (Death, Life-Threatening, Hospitalization)
  Sender: FDA-Public Use
  Company Number: FR-CELGENEUS-056-50794-12111277

PATIENT
  Age: 84 Year
  Sex: Male

DRUGS (2)
  1. VIDAZA [Suspect]
     Indication: ACUTE MYELOID LEUKEMIA
     Route: 058
  2. VIDAZA [Suspect]
     Route: 058
     Dates: start: 201208, end: 201208

REACTIONS (3)
  - Shock [Fatal]
  - Anuria [Fatal]
  - Renal failure acute [Fatal]
